FAERS Safety Report 13922549 (Version 3)
Quarter: 2019Q4

REPORT INFORMATION
  Report Type: Report from Study
  Country: US (occurrence: US)
  Receive Date: 20170830
  Receipt Date: 20191209
  Transmission Date: 20200122
  Serious: Yes (Hospitalization, Other)
  Sender: FDA-Public Use
  Company Number: US-TEVA-787788USA

PATIENT
  Age: 36 Year
  Sex: Female

DRUGS (10)
  1. DIVALPROEX [Concomitant]
     Active Substance: DIVALPROEX SODIUM
  2. AUSTEDO [Suspect]
     Active Substance: DEUTETRABENAZINE
     Indication: HUNTINGTON^S DISEASE
     Dosage: INITIAL START, TITRATING PATIENT
     Route: 065
     Dates: start: 20170621, end: 2017
  3. NAMENDA [Concomitant]
     Active Substance: MEMANTINE HYDROCHLORIDE
  4. AUSTEDO [Interacting]
     Active Substance: DEUTETRABENAZINE
     Dosage: 12 MILLIGRAM DAILY;
  5. AUSTEDO [Interacting]
     Active Substance: DEUTETRABENAZINE
     Dosage: 18 MILLIGRAM DAILY;
     Route: 065
     Dates: start: 2017, end: 20170717
  6. NANDIA (HIGENAMINE\CATECHOLAMINE) [Interacting]
     Active Substance: DIETARY SUPPLEMENT
     Indication: MENTAL DISORDER
     Route: 065
  7. ATIVAN [Concomitant]
     Active Substance: LORAZEPAM
  8. AUSTEDO [Interacting]
     Active Substance: DEUTETRABENAZINE
     Dosage: 6 MILLIGRAM DAILY; CURRENT (HALF A TABLET, TWICE A DAY)
     Route: 048
  9. SERTRALINE [Concomitant]
     Active Substance: SERTRALINE HYDROCHLORIDE
  10. VENLAFAXINE [Concomitant]
     Active Substance: VENLAFAXINE HYDROCHLORIDE

REACTIONS (11)
  - Off label use [Unknown]
  - Wrong technique in product usage process [Unknown]
  - Memory impairment [Recovering/Resolving]
  - Homicidal ideation [Recovered/Resolved]
  - Mood altered [Recovered/Resolved]
  - Drug interaction [Unknown]
  - Suicide attempt [Unknown]
  - Depression [Recovered/Resolved]
  - Confusional state [Recovering/Resolving]
  - Suicidal ideation [Recovered/Resolved]
  - Emotional disorder [Recovered/Resolved]

NARRATIVE: CASE EVENT DATE: 2017
